FAERS Safety Report 10079769 (Version 1)
Quarter: 2014Q2

REPORT INFORMATION
  Report Type: Spontaneous
  Country: US (occurrence: US)
  Receive Date: 20140415
  Receipt Date: 20140415
  Transmission Date: 20141212
  Serious: Yes (Disabling)
  Sender: FDA-Public Use
  Company Number: US-GLAXOSMITHKLINE-A1069490A

PATIENT
  Age: 51 Year
  Sex: Male

DRUGS (3)
  1. ADVAIR HFA [Suspect]
     Indication: PRODUCT USED FOR UNKNOWN INDICATION
     Route: 055
     Dates: start: 20110407
  2. FLONASE [Suspect]
     Indication: PRODUCT USED FOR UNKNOWN INDICATION
     Route: 055
     Dates: start: 20110407
  3. VENTOLIN HFA [Suspect]
     Indication: PRODUCT USED FOR UNKNOWN INDICATION
     Route: 055
     Dates: start: 20120410

REACTIONS (13)
  - Myocardial infarction [Unknown]
  - Hypertension [Unknown]
  - Chronic obstructive pulmonary disease [Unknown]
  - Asthma [Unknown]
  - Depression [Unknown]
  - Sleep apnoea syndrome [Unknown]
  - Sinus disorder [Unknown]
  - Intervertebral disc protrusion [Unknown]
  - Nervous system disorder [Unknown]
  - Back disorder [Unknown]
  - Carpal tunnel syndrome [Unknown]
  - Osteoarthritis [Unknown]
  - Tendonitis [Unknown]
